FAERS Safety Report 16274472 (Version 1)
Quarter: 2019Q2

REPORT INFORMATION
  Report Type: Spontaneous
  Country: DE (occurrence: DE)
  Receive Date: 20190504
  Receipt Date: 20190504
  Transmission Date: 20190711
  Serious: Yes (Hospitalization, Other)
  Sender: FDA-Public Use
  Company Number: DE-AUROBINDO-AUR-APL-2019-018830

PATIENT

DRUGS (8)
  1. FLUOROURACIL. [Suspect]
     Active Substance: FLUOROURACIL
     Dosage: 5600 MILLIGRAM, CYCLICAL
     Route: 042
     Dates: start: 20190305, end: 20190305
  2. OXALIPLATIN CONCENTRATE FOR SOLUTION FOR INFUSION [Suspect]
     Active Substance: OXALIPLATIN
     Indication: RECTAL CANCER
     Dosage: 170 MILLIGRAM, CYCLICAL
     Route: 042
     Dates: start: 20190215, end: 20190215
  3. AFLIBERCEPT [Suspect]
     Active Substance: AFLIBERCEPT
     Dosage: 320 MILLIGRAM, CYCLICAL
     Route: 042
     Dates: start: 20190318, end: 20190318
  4. FOLINIC ACID SOLUTION FOR INJECTION [Suspect]
     Active Substance: LEUCOVORIN
     Dosage: 700 MILLIGRAM, CYCLICAL
     Route: 042
     Dates: start: 20190304, end: 20190304
  5. FOLINIC ACID SOLUTION FOR INJECTION [Suspect]
     Active Substance: LEUCOVORIN
     Indication: RECTAL CANCER
     Dosage: 700 MILLIGRAM, CYCLICAL
     Route: 042
     Dates: start: 20190215, end: 20190215
  6. AFLIBERCEPT [Suspect]
     Active Substance: AFLIBERCEPT
     Indication: RECTAL CANCER
     Dosage: 320 MILLIGRAM, CYCLICAL
     Route: 042
     Dates: start: 20190215, end: 20190215
  7. OXALIPLATIN CONCENTRATE FOR SOLUTION FOR INFUSION [Suspect]
     Active Substance: OXALIPLATIN
     Dosage: 170 MILLIGRAM, CYCLICAL
     Route: 042
     Dates: start: 20190318, end: 20190318
  8. FLUOROURACIL. [Suspect]
     Active Substance: FLUOROURACIL
     Indication: RECTAL CANCER
     Dosage: 5600 MILLIGRAM, CYCLICAL
     Route: 042
     Dates: start: 20190215, end: 20190215

REACTIONS (3)
  - Nephrotic syndrome [Not Recovered/Not Resolved]
  - Hypertension [Recovered/Resolved]
  - Proteinuria [Recovered/Resolved]

NARRATIVE: CASE EVENT DATE: 20190318
